FAERS Safety Report 15998591 (Version 1)
Quarter: 2019Q1

REPORT INFORMATION
  Report Type: Spontaneous
  Country: US (occurrence: US)
  Receive Date: 20190223
  Receipt Date: 20190223
  Transmission Date: 20190418
  Serious: No
  Sender: FDA-Public Use
  Company Number: US-TEVA-2019-US-1012841

PATIENT
  Sex: Female

DRUGS (1)
  1. CLONIDINE TEVA [Suspect]
     Active Substance: CLONIDINE
     Indication: HYPERTENSION
     Dosage: .1 MILLIGRAM DAILY;
     Dates: start: 20190121

REACTIONS (1)
  - Drug effect variable [Unknown]

NARRATIVE: CASE EVENT DATE: 2019
